FAERS Safety Report 21204077 (Version 1)
Quarter: 2022Q3

REPORT INFORMATION
  Report Type: Spontaneous
  Country: IN (occurrence: IN)
  Receive Date: 20220812
  Receipt Date: 20220812
  Transmission Date: 20221027
  Serious: Yes (Death, Life-Threatening)
  Sender: FDA-Public Use
  Company Number: IN-drreddys-LIT/IND/22/0153171

PATIENT
  Age: 66 Year
  Sex: Female

DRUGS (9)
  1. DEXAMETHASONE [Suspect]
     Active Substance: DEXAMETHASONE
     Indication: Anaplastic large-cell lymphoma
     Dosage: CHOP-GCD-CCEP
  2. CYCLOPHOSPHAMIDE [Suspect]
     Active Substance: CYCLOPHOSPHAMIDE
     Indication: Anaplastic large-cell lymphoma
     Dosage: CHOP-GCD-CCEP
  3. DOXORUBICIN [Suspect]
     Active Substance: DOXORUBICIN
     Indication: Anaplastic large-cell lymphoma
     Dosage: CHOP-GCD-CCEP
  4. GEMCITABINE [Suspect]
     Active Substance: GEMCITABINE
     Indication: Anaplastic large-cell lymphoma
     Dosage: CHOP-GCD-CCEP
  5. VINCRISTINE [Suspect]
     Active Substance: VINCRISTINE
     Indication: Anaplastic large-cell lymphoma
     Dosage: CHOP-GCD-CCEP
  6. ETOPOSIDE [Suspect]
     Active Substance: ETOPOSIDE
     Indication: Anaplastic large-cell lymphoma
     Dosage: CHOP-GCD-CCEP
  7. PREDNISOLONE [Suspect]
     Active Substance: PREDNISOLONE
     Indication: Anaplastic large-cell lymphoma
     Dosage: CHOP-GCD-CCEP
  8. PROCARBAZINE [Suspect]
     Active Substance: PROCARBAZINE
     Indication: Anaplastic large-cell lymphoma
     Dosage: CHOP-GCD-CCEP
  9. CRIZOTINIB [Suspect]
     Active Substance: CRIZOTINIB
     Indication: Anaplastic large-cell lymphoma
     Dosage: CHOP-GCD-CCEP

REACTIONS (2)
  - Diffuse large B-cell lymphoma refractory [Fatal]
  - Drug ineffective [Unknown]
